FAERS Safety Report 16741429 (Version 1)
Quarter: 2019Q4

REPORT INFORMATION
  Report Type: Spontaneous
  Country: US (occurrence: US)
  Receive Date: 20190826
  Receipt Date: 20190826
  Transmission Date: 20200122
  Serious: No
  Sender: FDA-Public Use
  Company Number: None

PATIENT
  Sex: Female

DRUGS (2)
  1. METRONIDAZOLE. [Suspect]
     Active Substance: METRONIDAZOLE
  2. AZELAIC ACID. [Suspect]
     Active Substance: AZELAIC ACID

REACTIONS (2)
  - Rosacea [None]
  - Drug ineffective [None]
